FAERS Safety Report 8370185-3 (Version None)
Quarter: 2012Q1

REPORT INFORMATION
  Report Type: 
  Country: None (occurrence: None)
  Receive Date: 20120323
  Receipt Date: 20110810
  Transmission Date: 20120608
  Serious: Yes (Other)
  Sender: FDA-Public Use
  Company Number: 163-21880-11081343

PATIENT
  Age: 73 Year
  Sex: Female

DRUGS (3)
  1. DECADRON [Concomitant]
  2. REVLIMID [Suspect]
     Indication: MULTIPLE MYELOMA
     Dosage: 25 MG, QD ON DAYS 1-21, PO
     Route: 048
     Dates: start: 20110624
  3. ASPIRIN [Concomitant]

REACTIONS (1)
  - THROMBOSIS [None]
